FAERS Safety Report 6380775-5 (Version None)
Quarter: 2009Q3

REPORT INFORMATION
  Report Type: 
  Country: None (occurrence: None)
  Receive Date: 20090929
  Receipt Date: 20090922
  Transmission Date: 20100115
  Serious: Yes (Other)
  Sender: FDA-Public Use
  Company Number: US-JNJCH-2009020852

PATIENT
  Age: 16 Year
  Sex: Male

DRUGS (1)
  1. NEOSPORIN PLUS PAIN RELIEF MAXIMUM STRENGTH [Suspect]
     Indication: WOUND
     Dosage: TEXT:AT LEAST ONE TABLESPOON ONCE
     Route: 061
     Dates: start: 20090730, end: 20090730

REACTIONS (1)
  - ANAPHYLACTIC SHOCK [None]
